FAERS Safety Report 20149132 (Version 1)
Quarter: 2021Q4

REPORT INFORMATION
  Report Type: Spontaneous
  Country: US (occurrence: US)
  Receive Date: 20211205
  Receipt Date: 20211205
  Transmission Date: 20220303
  Serious: Yes (Other)
  Sender: FDA-Public Use
  Company Number: US-NOVARTISPH-NVSC2021US276063

PATIENT
  Age: 72 Year
  Sex: Male

DRUGS (2)
  1. RANITIDINE [Suspect]
     Active Substance: RANITIDINE
     Indication: Intestinal ulcer
     Dosage: 150 MG, QD
     Route: 065
     Dates: start: 200501, end: 201501
  2. RANITIDINE [Suspect]
     Active Substance: RANITIDINE
     Indication: Intestinal ulcer
     Dosage: 150 MG, QD
     Route: 065
     Dates: start: 200501, end: 201501

REACTIONS (1)
  - Prostate cancer [Unknown]

NARRATIVE: CASE EVENT DATE: 20180401
